FAERS Safety Report 5009717-1 (Version None)
Quarter: 2006Q2

REPORT INFORMATION
  Report Type: 
  Country: None (occurrence: None)
  Receive Date: 20060522
  Receipt Date: 20060508
  Transmission Date: 20061013
  Serious: Yes (Hospitalization)
  Sender: FDA-Public Use
  Company Number: 2006_000012

PATIENT
  Age: 69 Year
  Sex: Female

DRUGS (20)
  1. DEPOCYT [Suspect]
     Indication: PROPHYLAXIS
     Dosage: 50 MG;INTH
     Route: 037
     Dates: start: 20060101, end: 20060303
  2. METHOTREXATE [Concomitant]
  3. LEUCOVORIN [Concomitant]
  4. PLAQUENIL [Concomitant]
  5. PRAVACHOL [Concomitant]
  6. CELEBREX [Concomitant]
  7. FLEXERIL [Concomitant]
  8. CARDIZEM CD [Concomitant]
  9. AMBIEN [Concomitant]
  10. BACTRIM DS [Concomitant]
  11. ZOVIRAX [Concomitant]
  12. DIFLUCAN [Concomitant]
  13. DECADRON SRC [Concomitant]
  14. VINCIRSTINE [Concomitant]
  15. CYTOXAN [Concomitant]
  16. PREDNISONE [Concomitant]
  17. ELSPAR [Concomitant]
  18. CYTARABINE [Concomitant]
  19. DAUNORUBICIN HCL [Concomitant]
  20. DIAMOX [Concomitant]

REACTIONS (16)
  - ASTHENIA [None]
  - DECREASED APPETITE [None]
  - DIPLOPIA [None]
  - DIZZINESS [None]
  - EYE HAEMORRHAGE [None]
  - EYE MOVEMENT DISORDER [None]
  - FATIGUE [None]
  - HEADACHE [None]
  - NAUSEA [None]
  - PAPILLOEDEMA [None]
  - RETINAL HAEMORRHAGE [None]
  - STRABISMUS [None]
  - THROMBOCYTOPENIA [None]
  - VISION BLURRED [None]
  - VISUAL ACUITY REDUCED [None]
  - VITH NERVE PARALYSIS [None]
